FAERS Safety Report 8780500 (Version 1)
Quarter: 2012Q4

REPORT INFORMATION
  Report Type: Spontaneous
  Country: US (occurrence: None)
  Receive Date: 20120906
  Receipt Date: 20120906
  Transmission Date: 20130627
  Serious: Yes (Life-Threatening, Other)
  Sender: FDA-Public Use
  Company Number: None

PATIENT
  Weight: 47.63 kg

DRUGS (2)
  1. DECADRON [Suspect]
  2. BICILLIN [Suspect]

REACTIONS (1)
  - Haematemesis [None]
